FAERS Safety Report 19752144 (Version 2)
Quarter: 2021Q3

REPORT INFORMATION
  Report Type: Spontaneous
  Country: IT (occurrence: IT)
  Receive Date: 20210827
  Receipt Date: 20210903
  Transmission Date: 20211014
  Serious: Yes (Hospitalization, Other)
  Sender: FDA-Public Use
  Company Number: IT-CELLTRION INC.-2021IT011439

PATIENT

DRUGS (10)
  1. INFLIXIMAB [Suspect]
     Active Substance: INFLIXIMAB
     Dosage: 10 MG/KG/MONTH
     Route: 065
  2. METHOTREXATE. [Concomitant]
     Active Substance: METHOTREXATE
     Indication: INFLAMMATORY BOWEL DISEASE
     Dosage: UNK
     Dates: start: 201202, end: 201206
  3. THALIDOMIDE [Concomitant]
     Active Substance: THALIDOMIDE
     Indication: INFLAMMATORY BOWEL DISEASE
     Dosage: UNK
     Dates: start: 201206, end: 201709
  4. AZATHIOPRINE. [Concomitant]
     Active Substance: AZATHIOPRINE
     Indication: INFLAMMATORY BOWEL DISEASE
     Dosage: UNK
     Dates: start: 201005, end: 201202
  5. MESALAZINE [Suspect]
     Active Substance: MESALAMINE
     Dosage: UNK
     Route: 054
     Dates: start: 2020, end: 2020
  6. MESALAZINE UNK [Suspect]
     Active Substance: MESALAMINE
     Indication: COLITIS
     Dosage: UNK
     Dates: start: 201001, end: 201601
  7. INFLIXIMAB [Suspect]
     Active Substance: INFLIXIMAB
     Dosage: 10 MG/KG/MONTH
     Route: 065
     Dates: start: 201806, end: 202009
  8. MESALAZINE [Suspect]
     Active Substance: MESALAMINE
     Indication: INFLAMMATORY BOWEL DISEASE
     Dosage: UNK
     Route: 054
     Dates: start: 2010, end: 2010
  9. MESALAZINE [Suspect]
     Active Substance: MESALAMINE
     Dosage: UNK
     Route: 048
     Dates: start: 201001, end: 201601
  10. INFLIXIMAB [Suspect]
     Active Substance: INFLIXIMAB
     Indication: INFLAMMATORY BOWEL DISEASE
     Dosage: UNK
     Route: 065

REACTIONS (7)
  - Product use issue [Recovered/Resolved]
  - Contraindicated product administered [Recovered/Resolved]
  - Acute kidney injury [Recovered/Resolved]
  - Labelled drug-disease interaction medication error [Recovered/Resolved]
  - Haematuria [Unknown]
  - Product use in unapproved indication [Recovered/Resolved]
  - Off label use [Recovered/Resolved]

NARRATIVE: CASE EVENT DATE: 201001
